FAERS Safety Report 7688462-8 (Version None)
Quarter: 2011Q3

REPORT INFORMATION
  Report Type: 
  Country: None (occurrence: None)
  Receive Date: 20110817
  Receipt Date: 20110805
  Transmission Date: 20111222
  Serious: Yes (Other)
  Sender: FDA-Public Use
  Company Number: US-JNJFOC-20110804400

PATIENT
  Sex: Male

DRUGS (3)
  1. TOPAMAX [Suspect]
     Indication: AGGRESSION
     Route: 048
     Dates: start: 20070101, end: 20090101
  2. ZOLOFT [Concomitant]
     Indication: DEPRESSION
     Route: 048
  3. XANAX [Concomitant]
     Indication: ANXIETY
     Route: 048

REACTIONS (3)
  - READING DISORDER [None]
  - FEAR [None]
  - APHASIA [None]
